FAERS Safety Report 15263705 (Version 2)
Quarter: 2018Q3

REPORT INFORMATION
  Report Type: Report from Study
  Country: None (occurrence: KR)
  Receive Date: 20180810
  Receipt Date: 20180814
  Transmission Date: 20181010
  Serious: Yes (Hospitalization)
  Sender: FDA-Public Use
  Company Number: KR-ABBVIE-18K-090-2447375-00

PATIENT
  Age: 26 Year
  Sex: Female
  Weight: 41.6 kg

DRUGS (8)
  1. HUMIRA [Suspect]
     Active Substance: ADALIMUMAB
     Indication: BEHCET^S SYNDROME
     Dosage: QD ONCE
     Route: 058
     Dates: start: 20180601, end: 20180601
  2. HUMIRA [Suspect]
     Active Substance: ADALIMUMAB
     Route: 058
     Dates: start: 20180628
  3. COLCHIN [Concomitant]
     Indication: BEHCET^S SYNDROME
     Route: 048
     Dates: start: 20180529
  4. MESALAZINE [Concomitant]
     Active Substance: MESALAMINE
     Indication: BEHCET^S SYNDROME
     Route: 048
     Dates: start: 20180529
  5. PREDNISOLONE. [Concomitant]
     Active Substance: PREDNISOLONE
     Route: 048
     Dates: start: 20180607
  6. HUMIRA [Suspect]
     Active Substance: ADALIMUMAB
     Dosage: QD ONCE
     Route: 058
     Dates: start: 20180614, end: 20180614
  7. CODEINE PHOSPHATE [Concomitant]
     Active Substance: CODEINE PHOSPHATE
     Indication: PAIN MANAGEMENT
     Route: 048
     Dates: start: 20180717, end: 20180721
  8. PREDNISOLONE. [Concomitant]
     Active Substance: PREDNISOLONE
     Indication: BEHCET^S SYNDROME
     Route: 048
     Dates: start: 20180529, end: 20180605

REACTIONS (1)
  - Behcet^s syndrome [Recovered/Resolved]

NARRATIVE: CASE EVENT DATE: 20180705
